FAERS Safety Report 14656797 (Version 1)
Quarter: 2018Q1

REPORT INFORMATION
  Report Type: Spontaneous
  Country: US (occurrence: US)
  Receive Date: 20180319
  Receipt Date: 20180319
  Transmission Date: 20180509
  Serious: No
  Sender: FDA-Public Use
  Company Number: US-SA-2017SA075646

PATIENT
  Age: 66 Year
  Sex: Female
  Weight: 75.74 kg

DRUGS (2)
  1. NASACORT ALLERGY 24HR [Suspect]
     Active Substance: TRIAMCINOLONE ACETONIDE
     Indication: SEASONAL ALLERGY
     Dosage: 2 SP EN, 2 SPRAYS PER NOSTRIL. DOSE:2 UNIT(S)
     Route: 045
     Dates: start: 20170418, end: 20170418
  2. NASONEX [Concomitant]
     Active Substance: MOMETASONE FUROATE
     Indication: SEASONAL ALLERGY
     Route: 065

REACTIONS (5)
  - Retching [Not Recovered/Not Resolved]
  - Cough [Not Recovered/Not Resolved]
  - Rhinorrhoea [Not Recovered/Not Resolved]
  - Condition aggravated [Not Recovered/Not Resolved]
  - Sneezing [Not Recovered/Not Resolved]

NARRATIVE: CASE EVENT DATE: 20170418
